FAERS Safety Report 15893517 (Version 2)
Quarter: 2019Q2

REPORT INFORMATION
  Report Type: Report from Study
  Country: AT (occurrence: AT)
  Receive Date: 20190131
  Receipt Date: 20190409
  Transmission Date: 20190711
  Serious: Yes (Other)
  Sender: FDA-Public Use
  Company Number: AT-BIOGEN-2019BI00689146

PATIENT
  Age: 52 Year
  Sex: Female

DRUGS (1)
  1. TYSABRI [Suspect]
     Active Substance: NATALIZUMAB
     Indication: MULTIPLE SCLEROSIS
     Route: 050
     Dates: start: 20090818

REACTIONS (3)
  - Aortic valve incompetence [Not Recovered/Not Resolved]
  - Skin dystrophy [Recovered/Resolved]
  - Nail dystrophy [Recovered/Resolved]

NARRATIVE: CASE EVENT DATE: 20180502
